FAERS Safety Report 8313404-1 (Version None)
Quarter: 2012Q2

REPORT INFORMATION
  Report Type: 
  Country: None (occurrence: None)
  Receive Date: 20120426
  Receipt Date: 20120419
  Transmission Date: 20120825
  Serious: Yes (Death)
  Sender: FDA-Public Use
  Company Number: PHHY2012CN034531

PATIENT
  Age: 22 Year
  Sex: Female

DRUGS (1)
  1. GLEEVEC [Suspect]
     Indication: BLAST CRISIS IN MYELOGENOUS LEUKAEMIA
     Dosage: 0.6/2 G PER MIN

REACTIONS (3)
  - CHROMOSOME ANALYSIS ABNORMAL [None]
  - DRUG RESISTANCE [None]
  - DEATH [None]
